FAERS Safety Report 8409481-X (Version None)
Quarter: 2012Q2

REPORT INFORMATION
  Report Type: 
  Country: None (occurrence: None)
  Receive Date: 20120531
  Receipt Date: 20120531
  Transmission Date: 20120825
  Serious: Yes (Hospitalization)
  Sender: FDA-Public Use
  Company Number: None

PATIENT
  Sex: Female
  Weight: 175.9956 kg

DRUGS (1)
  1. VICTOZA [Suspect]
     Indication: DRUG THERAPY
     Dosage: 2 OR 3 MG 1 TIME A DAY
     Dates: start: 20120411, end: 20120418

REACTIONS (2)
  - CHEST PAIN [None]
  - PULMONARY EMBOLISM [None]
